FAERS Safety Report 7264557-8 (Version None)
Quarter: 2011Q1

REPORT INFORMATION
  Report Type: 
  Country: None (occurrence: None)
  Receive Date: 20110131
  Receipt Date: 20110127
  Transmission Date: 20110831
  Serious: No
  Sender: FDA-Public Use
  Company Number: US-PFIZER INC-2011020049

PATIENT
  Sex: Male
  Weight: 21.9 kg

DRUGS (1)
  1. UNASYN [Suspect]
     Indication: PHARYNGEAL ABSCESS
     Dosage: 1643 MG EVERY 6 HOURS
     Route: 042
     Dates: start: 20110125

REACTIONS (1)
  - NEUTROPHIL COUNT DECREASED [None]
